FAERS Safety Report 25675861 (Version 1)
Quarter: 2025Q3

REPORT INFORMATION
  Report Type: Report from Study
  Country: US (occurrence: US)
  Receive Date: 20250813
  Receipt Date: 20250813
  Transmission Date: 20251020
  Serious: Yes (Other)
  Sender: ABBVIE
  Company Number: US-ABBVIE-6410352

PATIENT
  Age: 47 Year
  Sex: Male

DRUGS (1)
  1. HUMIRA [Suspect]
     Active Substance: ADALIMUMAB
     Indication: Rheumatoid arthritis
     Route: 058
     Dates: start: 20250224

REACTIONS (8)
  - Paget-Schroetter syndrome [Unknown]
  - Thyroid cancer [Unknown]
  - Thyroid calcification [Unknown]
  - Dysphonia [Unknown]
  - Productive cough [Unknown]
  - Hypotension [Unknown]
  - Ankylosing spondylitis [Unknown]
  - Rheumatoid arthritis [Unknown]

NARRATIVE: CASE EVENT DATE: 20250101
